FAERS Safety Report 16097954 (Version 2)
Quarter: 2019Q4

REPORT INFORMATION
  Report Type: Report from Study
  Country: US (occurrence: US)
  Receive Date: 20190320
  Receipt Date: 20191018
  Transmission Date: 20200122
  Serious: Yes (Other)
  Sender: FDA-Public Use
  Company Number: US-ALEXION PHARMACEUTICALS INC.-A201903846

PATIENT
  Sex: Female

DRUGS (1)
  1. STRENSIQ [Suspect]
     Active Substance: ASFOTASE ALFA
     Indication: HYPOPHOSPHATASIA
     Dosage: UNK
     Route: 058
     Dates: end: 2018

REACTIONS (5)
  - Pain [Unknown]
  - Gait disturbance [Unknown]
  - Breast cancer [Unknown]
  - Scoliosis [Not Recovered/Not Resolved]
  - Dysstasia [Unknown]
